FAERS Safety Report 24804563 (Version 2)
Quarter: 2025Q1

REPORT INFORMATION
  Report Type: Report from Study
  Country: US (occurrence: US)
  Receive Date: 20250103
  Receipt Date: 20250206
  Transmission Date: 20250408
  Serious: Yes (Hospitalization)
  Sender: XERIS PHARMACEUTICALS
  Company Number: US-BRIAN CONNER SVP QUALITY AND CHIEF COMPLIANCE OFFICER-2024XER00559

PATIENT
  Age: 31 Year
  Sex: Male

DRUGS (6)
  1. KEVEYIS [Suspect]
     Active Substance: DICHLORPHENAMIDE
     Indication: Familial periodic paralysis
     Dosage: 50 MG, 2X/DAY
     Route: 048
     Dates: start: 20230427
  2. KEVEYIS [Suspect]
     Active Substance: DICHLORPHENAMIDE
     Dosage: 50 MG, 1X/DAY
     Route: 048
     Dates: start: 20240920, end: 20240923
  3. KEVEYIS [Suspect]
     Active Substance: DICHLORPHENAMIDE
     Dosage: 75 MG, 1X/DAY IN THE EVENING
     Route: 048
     Dates: start: 20240920, end: 20240923
  4. KEVEYIS [Suspect]
     Active Substance: DICHLORPHENAMIDE
     Dosage: 50 MG, 2X/DAY
     Route: 048
     Dates: start: 20240924, end: 2024
  5. KEVEYIS [Suspect]
     Active Substance: DICHLORPHENAMIDE
     Dosage: 25 MG, 2X/DAY
     Route: 048
     Dates: start: 2024
  6. KEVEYIS [Suspect]
     Active Substance: DICHLORPHENAMIDE
     Dosage: 25 MG, 1X/DAY
     Route: 048
     Dates: start: 20250108

REACTIONS (13)
  - Vertigo [Recovering/Resolving]
  - Feeling drunk [Recovering/Resolving]
  - Dysarthria [Recovering/Resolving]
  - Memory impairment [Recovering/Resolving]
  - Myalgia [Recovering/Resolving]
  - Bone pain [Recovering/Resolving]
  - Feeling abnormal [Recovering/Resolving]
  - Paralysis [Recovering/Resolving]
  - Hypoaesthesia [Recovering/Resolving]
  - Paraesthesia [Recovering/Resolving]
  - Confusional state [Recovering/Resolving]
  - Headache [Recovering/Resolving]
  - Unevaluable event [Unknown]

NARRATIVE: CASE EVENT DATE: 20240901
